FAERS Safety Report 6032632-1 (Version None)
Quarter: 2009Q1

REPORT INFORMATION
  Report Type: 
  Country: None (occurrence: None)
  Receive Date: 20090109
  Receipt Date: 20081230
  Transmission Date: 20090719
  Serious: Yes (Other)
  Sender: FDA-Public Use
  Company Number: US-BAYER-200910003BCC

PATIENT
  Age: 36 Year
  Sex: Female
  Weight: 64 kg

DRUGS (5)
  1. RID SHAMPOO [Suspect]
     Indication: LICE INFESTATION
  2. RID SPRAY [Suspect]
     Indication: LICE INFESTATION
  3. PROZAC [Concomitant]
  4. XANAX [Concomitant]
  5. SYNTHROID [Concomitant]

REACTIONS (4)
  - FEELING ABNORMAL [None]
  - FEELING COLD [None]
  - NEUROLOGICAL SYMPTOM [None]
  - PHOTOPHOBIA [None]
